FAERS Safety Report 19050978 (Version 1)
Quarter: 2021Q1

REPORT INFORMATION
  Report Type: Spontaneous
  Country: US (occurrence: US)
  Receive Date: 20210323
  Receipt Date: 20210323
  Transmission Date: 20210420
  Serious: No
  Sender: FDA-Public Use
  Company Number: US-TEVA-2021-US-1893315

PATIENT
  Sex: Male

DRUGS (2)
  1. DIAZEPAM. [Suspect]
     Active Substance: DIAZEPAM
     Indication: ANXIETY
     Dosage: 1.5 MILLIGRAM DAILY;
     Route: 065
  2. DIAZEPAM. [Suspect]
     Active Substance: DIAZEPAM
     Indication: POST-TRAUMATIC STRESS DISORDER
     Dosage: 30 MILLIGRAM DAILY;
     Route: 065
     Dates: start: 2013

REACTIONS (5)
  - Therapeutic product effect variable [Unknown]
  - Product physical consistency issue [Unknown]
  - Gastrooesophageal reflux disease [Unknown]
  - Product taste abnormal [Unknown]
  - Product counterfeit [Unknown]
